FAERS Safety Report 15570743 (Version 1)
Quarter: 2018Q4

REPORT INFORMATION
  Report Type: Spontaneous
  Country: US (occurrence: US)
  Receive Date: 20181031
  Receipt Date: 20181031
  Transmission Date: 20190205
  Serious: Yes (Life-Threatening, Hospitalization)
  Sender: FDA-Public Use
  Company Number: None

PATIENT
  Sex: Male
  Weight: 120.9 kg

DRUGS (10)
  1. ATORVASTATIN 40 MG PO DAILY [Concomitant]
  2. BACTRIM DS 800 MG/160 MG PO BID [Concomitant]
     Dates: start: 20180716, end: 20180726
  3. CLINDAMYCIN 300 MG PO QID [Concomitant]
     Dates: start: 20180716, end: 20180726
  4. CARVEDILOL 3.125 MG PO BID [Concomitant]
  5. METFORMIN 1000 MG ER PO BID [Concomitant]
  6. ULORIC (FEBUXOSTAT) 80 MG PO DAILY [Concomitant]
  7. LISINOPRIL. [Suspect]
     Active Substance: LISINOPRIL
     Indication: HYPERTENSION
     Route: 048
     Dates: start: 20180706, end: 20180726
  8. GABAPENTIN 300 MG PO AT BEDTIME [Concomitant]
  9. ZUPLEX (ONDANSETRON) FILM 4 MG PRN NAUSEA [Concomitant]
  10. GLIMEPIRIDE 4 MG PO DAILY [Concomitant]

REACTIONS (11)
  - Vomiting [None]
  - Bradycardia [None]
  - Cellulitis [None]
  - Hyperkalaemia [None]
  - Asthenia [None]
  - Dyspnoea [None]
  - Hyperhidrosis [None]
  - Hypotension [None]
  - Atrioventricular block [None]
  - Chest pain [None]
  - Therapy change [None]

NARRATIVE: CASE EVENT DATE: 20180726
